FAERS Safety Report 21303358 (Version 2)
Quarter: 2022Q3

REPORT INFORMATION
  Report Type: Report from Study
  Country: US (occurrence: US)
  Receive Date: 20220907
  Receipt Date: 20220909
  Transmission Date: 20221026
  Serious: No
  Sender: FDA-Public Use
  Company Number: US-NOVARTISTESTPH-NVSC2022US202017

PATIENT
  Sex: Female

DRUGS (1)
  1. ENTRESTO [Suspect]
     Active Substance: SACUBITRIL\VALSARTAN
     Indication: Cardiac failure
     Dosage: 0.5 MG, QD, (24/26 MG)
     Route: 048
     Dates: start: 202206

REACTIONS (3)
  - Prescribed underdose [Unknown]
  - Off label use [Unknown]
  - Wrong technique in product usage process [Not Recovered/Not Resolved]
